FAERS Safety Report 5935714-5 (Version None)
Quarter: 2008Q4

REPORT INFORMATION
  Report Type: 
  Country: None (occurrence: None)
  Receive Date: 20081028
  Receipt Date: 20081014
  Transmission Date: 20090506
  Serious: Yes (Other)
  Sender: FDA-Public Use
  Company Number: TRP_05902_2008

PATIENT
  Sex: Female
  Weight: 47.5823 kg

DRUGS (9)
  1. RIBASPHERE [Suspect]
     Indication: HEPATITIS C VIRUS TEST
     Dosage: DF ORAL, 200 MG BID ORAL, 400 MG BID ORAL
     Route: 048
     Dates: start: 20080602, end: 20080716
  2. RIBASPHERE [Suspect]
     Indication: HEPATITIS C VIRUS TEST
     Dosage: DF ORAL, 200 MG BID ORAL, 400 MG BID ORAL
     Route: 048
     Dates: start: 20080716, end: 20080811
  3. RIBASPHERE [Suspect]
     Indication: HEPATITIS C VIRUS TEST
     Dosage: DF ORAL, 200 MG BID ORAL, 400 MG BID ORAL
     Route: 048
     Dates: start: 20080811
  4. PEGASYS [Suspect]
     Indication: HEPATITIS C VIRUS TEST
     Dosage: 180 ?G 1X/WEEK SUBCUTANEOUS
     Route: 058
     Dates: start: 20080602
  5. ASPIRIN [Concomitant]
  6. CLONAZEPAM [Concomitant]
  7. LEXAPRO [Concomitant]
  8. PRILOSEC [Concomitant]
  9. DIOVAN [Concomitant]

REACTIONS (10)
  - ALOPECIA [None]
  - ANAEMIA [None]
  - CRYING [None]
  - DEPRESSION [None]
  - HEADACHE [None]
  - INFLUENZA LIKE ILLNESS [None]
  - LEUKOPENIA [None]
  - MALAISE [None]
  - VOMITING [None]
  - WEIGHT DECREASED [None]
